FAERS Safety Report 5078360-0 (Version None)
Quarter: 2006Q3

REPORT INFORMATION
  Report Type: 
  Country: None (occurrence: None)
  Receive Date: 20060811
  Receipt Date: 20060810
  Transmission Date: 20061208
  Serious: Yes (Hospitalization)
  Sender: FDA-Public Use
  Company Number: CA-GLAXOSMITHKLINE-A0616221A

PATIENT
  Age: 70 Year
  Sex: Female

DRUGS (2)
  1. VALTREX [Suspect]
     Indication: HERPES ZOSTER
     Route: 065
  2. UNSPECIFIED MEDICATION [Concomitant]

REACTIONS (4)
  - INFECTION [None]
  - MALAISE [None]
  - RASH [None]
  - RENAL FAILURE [None]
